FAERS Safety Report 5345806-X (Version None)
Quarter: 2007Q2

REPORT INFORMATION
  Report Type: 
  Country: None (occurrence: None)
  Receive Date: 20070601
  Receipt Date: 20070518
  Transmission Date: 20071010
  Serious: Yes (Other)
  Sender: FDA-Public Use
  Company Number: 2007US001018

PATIENT
  Age: 66 Year
  Sex: Female

DRUGS (9)
  1. AMBISOME [Suspect]
     Indication: PULMONARY MYCOSIS
     Dosage: 100 MG, UID/QD, IV DRIP
     Route: 041
     Dates: start: 20070223, end: 20070307
  2. ITRACONAZOLE [Concomitant]
  3. DEPAS (ETIZOLAM) [Concomitant]
  4. GASTER D [Concomitant]
  5. CLONAZEPAM [Concomitant]
  6. ACTONEL [Concomitant]
  7. MEDROL [Concomitant]
  8. PRAVASTATIN [Concomitant]
  9. DENOSINE (GANCICLOVIR) [Concomitant]

REACTIONS (3)
  - INTERSTITIAL LUNG DISEASE [None]
  - POLYMYOSITIS [None]
  - PULMONARY ALVEOLAR HAEMORRHAGE [None]
